FAERS Safety Report 12234604 (Version 1)
Quarter: 2016Q2

REPORT INFORMATION
  Report Type: Spontaneous
  Country: US (occurrence: None)
  Receive Date: 20160401
  Receipt Date: 20160401
  Transmission Date: 20160815
  Serious: Yes (Hospitalization)
  Sender: FDA-Public Use
  Company Number: None

PATIENT
  Age: 69 Year
  Sex: Male
  Weight: 173.9 kg

DRUGS (1)
  1. RIVAROXABAN [Suspect]
     Active Substance: RIVAROXABAN
     Dosage: MG  PO
     Route: 048
     Dates: start: 20140306

REACTIONS (4)
  - Haematochezia [None]
  - Haemorrhage [None]
  - Anaemia [None]
  - Septic shock [None]

NARRATIVE: CASE EVENT DATE: 20160208
